FAERS Safety Report 11847762 (Version 2)
Quarter: 2016Q1

REPORT INFORMATION
  Report Type: Spontaneous
  Country: US (occurrence: US)
  Receive Date: 20151217
  Receipt Date: 20160315
  Transmission Date: 20160526
  Serious: No
  Sender: FDA-Public Use
  Company Number: US-GLAXOSMITHKLINE-US2015176319

PATIENT
  Sex: Female
  Weight: 45.35 kg

DRUGS (1)
  1. BREO ELLIPTA [Suspect]
     Active Substance: FLUTICASONE FUROATE\VILANTEROL TRIFENATATE
     Indication: CHRONIC OBSTRUCTIVE PULMONARY DISEASE
     Dosage: 100/25 MCG UNK, U
     Route: 048

REACTIONS (8)
  - Palpitations [Unknown]
  - Asthenia [Unknown]
  - Fatigue [Unknown]
  - Tremor [Unknown]
  - Headache [Unknown]
  - Stomatitis [Unknown]
  - Candida infection [Unknown]
  - Blood glucose fluctuation [Unknown]
